FAERS Safety Report 12378578 (Version 1)
Quarter: 2016Q2

REPORT INFORMATION
  Report Type: Spontaneous
  Country: US (occurrence: US)
  Receive Date: 20160517
  Receipt Date: 20160517
  Transmission Date: 20160815
  Serious: No
  Sender: FDA-Public Use
  Company Number: US-PERNIX THERAPEUTICS-2012SO000044

PATIENT
  Age: 48 Year
  Sex: Female
  Weight: 45.36 kg

DRUGS (7)
  1. CLONAZEPAM. [Concomitant]
     Active Substance: CLONAZEPAM
  2. CLARITIN [Concomitant]
     Active Substance: LORATADINE
  3. SILENOR [Suspect]
     Active Substance: DOXEPIN HYDROCHLORIDE
     Indication: MIDDLE INSOMNIA
     Route: 048
     Dates: start: 20121012, end: 20121015
  4. ULTRAM [Concomitant]
     Active Substance: TRAMADOL HYDROCHLORIDE
  5. OXYCONTIN [Concomitant]
     Active Substance: OXYCODONE HYDROCHLORIDE
  6. SILENOR [Suspect]
     Active Substance: DOXEPIN HYDROCHLORIDE
     Dosage: 1.5 MG, ONCE
     Route: 048
     Dates: start: 20121016, end: 20121016
  7. ALEVE [Concomitant]
     Active Substance: NAPROXEN SODIUM

REACTIONS (5)
  - Medication error [Unknown]
  - Fatigue [Not Recovered/Not Resolved]
  - Somnolence [Recovered/Resolved]
  - Dysgeusia [Recovered/Resolved]
  - Drug ineffective [Not Recovered/Not Resolved]

NARRATIVE: CASE EVENT DATE: 20121012
